FAERS Safety Report 5125390-6 (Version None)
Quarter: 2006Q4

REPORT INFORMATION
  Report Type: 
  Country: None (occurrence: None)
  Receive Date: 20061006
  Receipt Date: 20060926
  Transmission Date: 20070319
  Serious: Yes (Other)
  Sender: FDA-Public Use
  Company Number: 2006096690

PATIENT
  Sex: Female

DRUGS (1)
  1. MINOXIDIL [Suspect]
     Indication: HYPOTRICHOSIS
     Dosage: MORE THAN 1ML TWICE A
     Dates: start: 19960101

REACTIONS (1)
  - BREAST CANCER FEMALE [None]
